FAERS Safety Report 18506838 (Version 2)
Quarter: 2020Q4

REPORT INFORMATION
  Report Type: Spontaneous
  Country: US (occurrence: AU)
  Receive Date: 20201116
  Receipt Date: 20201203
  Transmission Date: 20210114
  Serious: Yes (Other)
  Sender: FDA-Public Use
  Company Number: US-BAYER-2020-246037

PATIENT
  Age: 9 Year
  Sex: Female

DRUGS (1)
  1. CLARATYNE [Suspect]
     Active Substance: LORATADINE
     Dosage: UNK, QD
     Dates: start: 2014, end: 202008

REACTIONS (2)
  - Coeliac disease [None]
  - Seasonal allergy [None]

NARRATIVE: CASE EVENT DATE: 2015
